FAERS Safety Report 5678231-2 (Version None)
Quarter: 2008Q1

REPORT INFORMATION
  Report Type: 
  Country: None (occurrence: None)
  Receive Date: 20080325
  Receipt Date: 20080313
  Transmission Date: 20080703
  Serious: Yes (Other)
  Sender: FDA-Public Use
  Company Number: HQWYE789326JUN03

PATIENT
  Sex: Female

DRUGS (2)
  1. PREMPRO [Suspect]
     Dosage: UNKNOWN
     Route: 048
  2. PREMARIN [Suspect]

REACTIONS (2)
  - CEREBROVASCULAR ACCIDENT [None]
  - PELVIC MASS [None]
